FAERS Safety Report 15239136 (Version 3)
Quarter: 2018Q3

REPORT INFORMATION
  Report Type: Spontaneous
  Country: SI (occurrence: SI)
  Receive Date: 20180803
  Receipt Date: 20180914
  Transmission Date: 20181010
  Serious: Yes (Death, Other)
  Sender: FDA-Public Use
  Company Number: SI-BAYER-2018-138408

PATIENT
  Age: 58 Year
  Sex: Female

DRUGS (1)
  1. STIVARGA [Suspect]
     Active Substance: REGORAFENIB
     Indication: COLON CANCER
     Dosage: UNK
     Dates: start: 2018, end: 2018

REACTIONS (6)
  - Vomiting [None]
  - Yellow skin [None]
  - Colon cancer [Fatal]
  - Hepatic failure [None]
  - Liver injury [None]
  - Internal injury [None]

NARRATIVE: CASE EVENT DATE: 2018
